FAERS Safety Report 13707308 (Version 1)
Quarter: 2017Q2

REPORT INFORMATION
  Report Type: Report from Study
  Country: None (occurrence: US)
  Receive Date: 20170630
  Receipt Date: 20170630
  Transmission Date: 20170830
  Serious: No
  Sender: FDA-Public Use
  Company Number: US-IPSEN BIOPHARMACEUTICALS, INC.-2013-5933

PATIENT
  Sex: Female

DRUGS (1)
  1. SOMATULINE DEPOT [Suspect]
     Active Substance: LANREOTIDE ACETATE
     Indication: ACROMEGALY
     Route: 058
     Dates: start: 20100719

REACTIONS (5)
  - Flatulence [Unknown]
  - Inappropriate schedule of drug administration [Unknown]
  - Defaecation urgency [None]
  - Frequent bowel movements [Unknown]
  - Faeces discoloured [Unknown]
